FAERS Safety Report 9326442 (Version 1)
Quarter: 2013Q2

REPORT INFORMATION
  Report Type: Spontaneous
  Country: US (occurrence: None)
  Receive Date: 20130603
  Receipt Date: 20130603
  Transmission Date: 20140414
  Serious: No
  Sender: FDA-Public Use
  Company Number: None

PATIENT
  Age: 11 Year
  Sex: Female
  Weight: 47.1 kg

DRUGS (5)
  1. DACTINOMYCIN [Suspect]
  2. DOXORUBICIN HYDROCHLORIDE [Suspect]
  3. VINCRISTINE SULFATE [Suspect]
  4. MAGNESIUM OXIDE [Concomitant]
  5. PENTAMADINE [Concomitant]

REACTIONS (3)
  - Renal mass [None]
  - Hepatic lesion [None]
  - Neutrophil count decreased [None]
